FAERS Safety Report 17090609 (Version 1)
Quarter: 2019Q4

REPORT INFORMATION
  Report Type: Spontaneous
  Country: GR (occurrence: GR)
  Receive Date: 20191129
  Receipt Date: 20191129
  Transmission Date: 20200122
  Serious: Yes (Hospitalization, Other)
  Sender: FDA-Public Use
  Company Number: GR-009507513-1911GRC009420

PATIENT
  Sex: Female

DRUGS (3)
  1. BETAMETHASONE ACETATE (+) BETAMETHASONE SODIUM PHOSPHATE [Suspect]
     Active Substance: BETAMETHASONE ACETATE\BETAMETHASONE SODIUM PHOSPHATE
     Indication: FOETAL EXPOSURE DURING PREGNANCY
     Dosage: 12 MG
     Route: 064
  2. LEVETIRACETAM. [Suspect]
     Active Substance: LEVETIRACETAM
     Indication: FOETAL EXPOSURE DURING PREGNANCY
     Dosage: UNK
     Route: 064
  3. LAMOTRIGINE. [Suspect]
     Active Substance: LAMOTRIGINE
     Indication: FOETAL EXPOSURE DURING PREGNANCY
     Dosage: UNK
     Route: 064

REACTIONS (6)
  - Hydrops foetalis [Recovered/Resolved]
  - Premature baby [Unknown]
  - Apnoea [Recovered/Resolved]
  - Cyanosis [Recovered/Resolved]
  - Foetal exposure during pregnancy [Unknown]
  - Hypotonia [Recovered/Resolved]
